FAERS Safety Report 23890728 (Version 1)
Quarter: 2024Q2

REPORT INFORMATION
  Report Type: Spontaneous
  Country: SE (occurrence: SE)
  Receive Date: 20240523
  Receipt Date: 20240523
  Transmission Date: 20240715
  Serious: Yes (Disabling)
  Sender: FDA-Public Use
  Company Number: None

PATIENT
  Age: 40 Year
  Sex: Male

DRUGS (1)
  1. LISDEXAMFETAMINE DIMESYLATE [Suspect]
     Active Substance: LISDEXAMFETAMINE DIMESYLATE
     Indication: Product used for unknown indication
     Dosage: UNK
     Route: 065

REACTIONS (2)
  - Drug ineffective [Not Recovered/Not Resolved]
  - Product physical issue [Unknown]

NARRATIVE: CASE EVENT DATE: 20240510
